FAERS Safety Report 4798175-8 (Version None)
Quarter: 2005Q4

REPORT INFORMATION
  Report Type: 
  Country: None (occurrence: None)
  Receive Date: 20051011
  Receipt Date: 20050801
  Transmission Date: 20060501
  Serious: Yes (Other)
  Sender: FDA-Public Use
  Company Number: 2005BH001284

PATIENT
  Age: 54 Year
  Sex: Male

DRUGS (5)
  1. LIDOCAINE HYDROCHLORIDE [Suspect]
     Indication: ANALGESIC EFFECT
     Dosage: 4 ML; ONCE
  2. FENTANYL [Concomitant]
  3. GABAPENTIN [Concomitant]
  4. ANTIINFLAMMATORY/ ANTIRHEUMATIC NON-STEROIDS [Concomitant]
  5. TRAMADOL HCL [Concomitant]

REACTIONS (5)
  - ANAESTHETIC COMPLICATION [None]
  - CATHETER RELATED COMPLICATION [None]
  - DIZZINESS [None]
  - RESPIRATORY DISTRESS [None]
  - RESPIRATORY RATE DECREASED [None]
